FAERS Safety Report 6506725-6 (Version None)
Quarter: 2009Q4

REPORT INFORMATION
  Report Type: 
  Country: None (occurrence: None)
  Receive Date: 20091221
  Receipt Date: 20091210
  Transmission Date: 20100525
  Serious: Yes (Other)
  Sender: FDA-Public Use
  Company Number: US-AMGEN-QUU371834

PATIENT
  Sex: Female
  Weight: 65.4 kg

DRUGS (2)
  1. ENBREL [Suspect]
     Indication: PSORIATIC ARTHROPATHY
     Route: 058
     Dates: start: 20070111, end: 20091003
  2. CELEBREX [Concomitant]
     Dates: start: 20080301

REACTIONS (4)
  - BLOOD CHOLESTEROL INCREASED [None]
  - OSTEOPOROSIS [None]
  - RETINAL HAEMORRHAGE [None]
  - URINARY TRACT INFECTION [None]
